FAERS Safety Report 4960546-4 (Version None)
Quarter: 2006Q1

REPORT INFORMATION
  Report Type: 
  Country: None (occurrence: None)
  Receive Date: 20060329
  Receipt Date: 20060321
  Transmission Date: 20060701
  Serious: Yes (Other)
  Sender: FDA-Public Use
  Company Number: AU-GDP-0612901

PATIENT
  Age: 82 Year
  Sex: Female

DRUGS (4)
  1. ROZEX [Suspect]
     Indication: ROSACEA
     Dosage: 1 APP BID TP
     Route: 061
     Dates: start: 20000101
  2. AVAPRO [Concomitant]
  3. TRITACE [Concomitant]
  4. DIAPHORMIN [Concomitant]

REACTIONS (1)
  - SKIN CANCER [None]
